FAERS Safety Report 23069792 (Version 2)
Quarter: 2024Q1

REPORT INFORMATION
  Report Type: Spontaneous
  Country: CA (occurrence: CA)
  Receive Date: 20231016
  Receipt Date: 20240110
  Transmission Date: 20240410
  Serious: Yes (Hospitalization, Other)
  Sender: FDA-Public Use
  Company Number: CA-OTSUKA-2023_026640

PATIENT
  Age: 48 Year
  Sex: Male
  Weight: 91 kg

DRUGS (2)
  1. ARIPIPRAZOLE [Suspect]
     Active Substance: ARIPIPRAZOLE
     Indication: Product used for unknown indication
     Dosage: UNK
     Route: 065
     Dates: end: 202304
  2. CLOZARIL [Suspect]
     Active Substance: CLOZAPINE
     Indication: Product used for unknown indication
     Dosage: UNK
     Route: 048
     Dates: start: 20220511

REACTIONS (7)
  - Mitral valve incompetence [Unknown]
  - Tricuspid valve incompetence [Unknown]
  - QRS axis abnormal [Unknown]
  - Sinus tachycardia [Not Recovered/Not Resolved]
  - Electrocardiogram QT prolonged [Not Recovered/Not Resolved]
  - Chest pain [Unknown]
  - Hypertension [Unknown]

NARRATIVE: CASE EVENT DATE: 20220913
